FAERS Safety Report 5649432-4 (Version None)
Quarter: 2008Q1

REPORT INFORMATION
  Report Type: 
  Country: None (occurrence: None)
  Receive Date: 20080304
  Receipt Date: 20080220
  Transmission Date: 20080703
  Serious: Yes (Hospitalization)
  Sender: FDA-Public Use
  Company Number: DE-BAYER-200710358BVD

PATIENT
  Age: 57 Year
  Sex: Female
  Weight: 45 kg

DRUGS (15)
  1. SORAFENIB [Suspect]
     Indication: NON-SMALL CELL LUNG CANCER
     Dosage: TOTAL DAILY DOSE: 800 MG  UNIT DOSE: 200 MG
     Route: 048
     Dates: start: 20070216, end: 20070315
  2. PACLITAXEL [Suspect]
     Indication: NON-SMALL CELL LUNG CANCER
     Route: 042
     Dates: start: 20070215, end: 20070215
  3. PACLITAXEL [Suspect]
     Route: 042
     Dates: start: 20070308, end: 20070308
  4. CARBOPLATIN [Suspect]
     Indication: NON-SMALL CELL LUNG CANCER
     Route: 042
     Dates: start: 20070308, end: 20070308
  5. CARBOPLATIN [Suspect]
     Route: 042
     Dates: start: 20070215, end: 20070215
  6. ZOMETA [Concomitant]
     Route: 042
     Dates: start: 20070301
  7. NOVALGIN [Concomitant]
     Dosage: AS USED: 40 GTT
     Route: 048
     Dates: start: 20070209
  8. DURAGESIC-100 [Concomitant]
     Route: 062
     Dates: start: 20070215
  9. VOLTAREN [Concomitant]
     Dosage: TOTAL DAILY DOSE: 50 MG
     Route: 048
     Dates: start: 20070215
  10. SAROTEN [Concomitant]
     Dosage: UNIT DOSE: 25 MG
     Route: 048
     Dates: start: 20070209
  11. PANTOZOL [Concomitant]
     Dosage: TOTAL DAILY DOSE: 80 MG
     Route: 048
     Dates: start: 20070209
  12. PASPERTIN [Concomitant]
     Dosage: TOTAL DAILY DOSE: 90 GTT
     Route: 048
     Dates: start: 20070215
  13. ACETYLCYSTEINE [Concomitant]
     Dosage: TOTAL DAILY DOSE: 400 MG
     Route: 048
     Dates: start: 20070215
  14. SPIRIVA [Concomitant]
     Dosage: TOTAL DAILY DOSE: 36 ?G
     Route: 055
     Dates: start: 20070209
  15. CALCIUM [Concomitant]
     Route: 048
     Dates: start: 20070209

REACTIONS (1)
  - GASTROINTESTINAL HAEMORRHAGE [None]
